FAERS Safety Report 4449793-8 (Version None)
Quarter: 2004Q3

REPORT INFORMATION
  Report Type: 
  Country: None (occurrence: None)
  Receive Date: 20040802
  Receipt Date: 20040421
  Transmission Date: 20050211
  Serious: No
  Sender: FDA-Public Use
  Company Number: 2004-115366-NL

PATIENT
  Age: 17 Year
  Sex: Female
  Weight: 56.8 kg

DRUGS (7)
  1. NUVARING [Suspect]
     Indication: CONTRACEPTION
     Dosage: DF DAILY VAGINAL
     Dates: start: 20030501, end: 20040301
  2. PROZAC [Concomitant]
  3. ALBUTEROL [Concomitant]
  4. FLONASE [Concomitant]
  5. FLOVENT [Concomitant]
  6. MAXALT [Concomitant]
  7. TYLENOL [Concomitant]

REACTIONS (2)
  - APPLICATION SITE BLEEDING [None]
  - DEVICE FAILURE [None]
